FAERS Safety Report 22045249 (Version 1)
Quarter: 2023Q1

REPORT INFORMATION
  Report Type: Spontaneous
  Country: US (occurrence: None)
  Receive Date: 20230227
  Receipt Date: 20230227
  Transmission Date: 20230417
  Serious: Yes (Hospitalization)
  Sender: FDA-Public Use
  Company Number: None

PATIENT
  Sex: Female

DRUGS (2)
  1. SANDIMMUNE [Suspect]
     Active Substance: CYCLOSPORINE
     Indication: Renal transplant
     Dosage: FREQUENCY : TWICE A DAY;?
     Route: 048
  2. albuterol HFA 8.5g [Concomitant]
     Dates: start: 20230210

REACTIONS (1)
  - Fall [None]
